FAERS Safety Report 8460778-7 (Version None)
Quarter: 2012Q2

REPORT INFORMATION
  Report Type: 
  Country: None (occurrence: None)
  Receive Date: 20120623
  Receipt Date: 20120618
  Transmission Date: 20120825
  Serious: Yes (Hospitalization, Other)
  Sender: FDA-Public Use
  Company Number: US-AMGEN-USASP2012034114

PATIENT
  Age: 66 Year
  Sex: Female

DRUGS (2)
  1. HUMIRA [Concomitant]
     Dosage: UNK
  2. ENBREL [Suspect]
     Indication: RHEUMATOID ARTHRITIS
     Dosage: 50 MG, QWK
     Dates: start: 20010101

REACTIONS (10)
  - LIVER FUNCTION TEST ABNORMAL [None]
  - HYPERAESTHESIA [None]
  - COUGH [None]
  - GAIT DISTURBANCE [None]
  - RHEUMATOID ARTHRITIS [None]
  - MOBILITY DECREASED [None]
  - DRUG EFFECT DECREASED [None]
  - SINUSITIS [None]
  - RASH [None]
  - PARANASAL SINUS HYPERSECRETION [None]
